FAERS Safety Report 7839179-8 (Version None)
Quarter: 2011Q4

REPORT INFORMATION
  Report Type: 
  Country: None (occurrence: None)
  Receive Date: 20111024
  Receipt Date: 20110714
  Transmission Date: 20120403
  Serious: No
  Sender: FDA-Public Use
  Company Number: US-ABBOTT-11P-163-0838950-00

PATIENT
  Sex: Female

DRUGS (3)
  1. LUPRON DEPOT [Suspect]
     Indication: UTERINE LEIOMYOMA
     Dates: start: 20110501
  2. NORETHINDRONE [Concomitant]
     Indication: HOT FLUSH
  3. NORETHINDRONE [Concomitant]
     Indication: NIGHT SWEATS

REACTIONS (4)
  - COUGH [None]
  - NASAL CONGESTION [None]
  - RHINORRHOEA [None]
  - SINUS HEADACHE [None]
